FAERS Safety Report 19870368 (Version 2)
Quarter: 2022Q2

REPORT INFORMATION
  Report Type: Spontaneous
  Country: IT (occurrence: IT)
  Receive Date: 20210923
  Receipt Date: 20220420
  Transmission Date: 20220721
  Serious: Yes (Other)
  Sender: FDA-Public Use
  Company Number: IT-LUPIN PHARMACEUTICALS INC.-2021-17905

PATIENT
  Age: 38 Year
  Sex: Female

DRUGS (7)
  1. RIFAMPIN [Suspect]
     Active Substance: RIFAMPIN
     Indication: Lymph node tuberculosis
     Dosage: 600 MILLIGRAM, QD
     Route: 065
     Dates: start: 201906, end: 201911
  2. ISONIAZID [Suspect]
     Active Substance: ISONIAZID
     Indication: Lymph node tuberculosis
     Dosage: 300 MILLIGRAM, QD
     Route: 065
     Dates: start: 201906, end: 201911
  3. RUXOLITINIB [Suspect]
     Active Substance: RUXOLITINIB
     Indication: Myelofibrosis
     Dosage: 15 MILLIGRAM
     Route: 065
     Dates: start: 201901, end: 2019
  4. RUXOLITINIB [Suspect]
     Active Substance: RUXOLITINIB
     Dosage: UNK
     Route: 065
     Dates: start: 201909
  5. ASPIRIN [Concomitant]
     Active Substance: ASPIRIN
     Indication: Essential thrombocythaemia
     Dosage: 100 MILLIGRAM, QD
     Route: 065
     Dates: start: 2011
  6. PYRAZINAMIDE [Concomitant]
     Active Substance: PYRAZINAMIDE
     Indication: Lymph node tuberculosis
     Dosage: 500 MILLIGRAM, QD
     Route: 065
     Dates: start: 201906, end: 201907
  7. ETHAMBUTOL [Concomitant]
     Active Substance: ETHAMBUTOL HYDROCHLORIDE
     Indication: Lymph node tuberculosis
     Dosage: 400 MILLIGRAM, QD
     Route: 065
     Dates: start: 201906, end: 201907

REACTIONS (1)
  - Anaemia [Unknown]

NARRATIVE: CASE EVENT DATE: 20190101
